FAERS Safety Report 8448900-X (Version None)
Quarter: 2012Q2

REPORT INFORMATION
  Report Type: 
  Country: None (occurrence: None)
  Receive Date: 20120619
  Receipt Date: 20120611
  Transmission Date: 20120825
  Serious: Yes (Hospitalization)
  Sender: FDA-Public Use
  Company Number: BR-GLAXOSMITHKLINE-A0981207A

PATIENT
  Sex: Female
  Weight: 65 kg

DRUGS (3)
  1. ALLERGY MEDICATION [Concomitant]
  2. ALBUTEROL [Suspect]
     Indication: ASTHMA
     Route: 065
     Dates: start: 20120511
  3. LEVOTHYROXINE SODIUM [Concomitant]
     Indication: PRODUCT USED FOR UNKNOWN INDICATION
     Dosage: 1TAB PER DAY
     Route: 065
     Dates: start: 20100601

REACTIONS (4)
  - TREMOR [None]
  - CONVULSION [None]
  - CONFUSIONAL STATE [None]
  - HYPOTENSION [None]
